FAERS Safety Report 9332437 (Version 2)
Quarter: 2013Q2

REPORT INFORMATION
  Report Type: Spontaneous
  Country: CN (occurrence: CN)
  Receive Date: 20130606
  Receipt Date: 20130615
  Transmission Date: 20140414
  Serious: Yes (Other)
  Sender: FDA-Public Use
  Company Number: CN-009507513-1305CHN017683

PATIENT
  Age: 87 Year
  Sex: Female
  Weight: 40 kg

DRUGS (1)
  1. TIENAM [Suspect]
     Indication: LUNG INFECTION
     Dosage: 0.5 G, TID
     Route: 041
     Dates: start: 20111222, end: 20111231

REACTIONS (2)
  - Epilepsy [Recovered/Resolved]
  - Arrhythmia [Unknown]
